FAERS Safety Report 24951789 (Version 2)
Quarter: 2025Q2

REPORT INFORMATION
  Report Type: Spontaneous
  Country: US (occurrence: US)
  Receive Date: 20250210
  Receipt Date: 20250404
  Transmission Date: 20250716
  Serious: Yes (Other)
  Sender: BRISTOL MYERS SQUIBB
  Company Number: US-BRISTOL-MYERS SQUIBB COMPANY-2025-013024

PATIENT
  Age: 54 Year
  Sex: Female

DRUGS (1)
  1. LENALIDOMIDE [Suspect]
     Active Substance: LENALIDOMIDE
     Indication: Plasma cell myeloma
     Dosage: TAKE 1 CAPSULE (10MG) BY MOUTH EVERY DAY FOR 21 DAYS
     Route: 048

REACTIONS (11)
  - Insurance issue [Recovering/Resolving]
  - Therapy interrupted [Recovering/Resolving]
  - Diarrhoea [Unknown]
  - Fatigue [Unknown]
  - Full blood count decreased [Unknown]
  - Nausea [Unknown]
  - Decreased appetite [Unknown]
  - Pain in extremity [Unknown]
  - Arthralgia [Unknown]
  - Arthropathy [Unknown]
  - Procedural pain [Unknown]
